FAERS Safety Report 17862691 (Version 1)
Quarter: 2020Q2

REPORT INFORMATION
  Report Type: Spontaneous
  Country: US (occurrence: US)
  Receive Date: 20200604
  Receipt Date: 20200604
  Transmission Date: 20200714
  Serious: No
  Sender: FDA-Public Use
  Company Number: US-FOUNDATIONCONSUMERHC-2020-US-005314

PATIENT
  Sex: Female

DRUGS (2)
  1. XULANE [Concomitant]
     Active Substance: ETHINYL ESTRADIOL\NORELGESTROMIN
     Route: 061
  2. PLAN B ONE-STEP [Suspect]
     Active Substance: LEVONORGESTREL
     Indication: POST COITAL CONTRACEPTION
     Dosage: 1.5 MG X 1 DOSE
     Route: 048
     Dates: start: 202001, end: 202001

REACTIONS (5)
  - Menstruation delayed [Recovered/Resolved]
  - Menorrhagia [Recovered/Resolved]
  - Product use in unapproved indication [Recovered/Resolved]
  - Menstruation irregular [Recovered/Resolved]
  - Intentional product misuse [Recovered/Resolved]

NARRATIVE: CASE EVENT DATE: 202001
